FAERS Safety Report 5972132-8 (Version None)
Quarter: 2008Q4

REPORT INFORMATION
  Report Type: 
  Country: None (occurrence: None)
  Receive Date: 20081201
  Receipt Date: 20080714
  Transmission Date: 20090506
  Serious: Yes (Other)
  Sender: FDA-Public Use
  Company Number: US-TEVA-174441USA

PATIENT
  Age: 65 Year
  Sex: Female
  Weight: 52.21 kg

DRUGS (2)
  1. SALBUTAMOL SULFATE INHALATION, 0.09 MG [Suspect]
     Indication: CHRONIC OBSTRUCTIVE PULMONARY DISEASE
     Dosage: 8.5 GRAMS, 2 PUFFS, 3-4 HOURS
     Route: 055
     Dates: start: 20070701, end: 20080428
  2. IPRATROPIUM BROMIDE [Suspect]
     Dosage: 17 MCG, 2 PUFFS, 3-4 HOURS
     Route: 058
     Dates: start: 20070905, end: 20080428

REACTIONS (2)
  - ABASIA [None]
  - DRUG INEFFECTIVE [None]
